FAERS Safety Report 10245074 (Version 1)
Quarter: 2014Q2

REPORT INFORMATION
  Report Type: Spontaneous
  Country: US (occurrence: US)
  Receive Date: 20140618
  Receipt Date: 20140618
  Transmission Date: 20141212
  Serious: No
  Sender: FDA-Public Use
  Company Number: US-GALDERMA-US14000735

PATIENT
  Age: 52 Year
  Sex: Female

DRUGS (12)
  1. MIRVASO (BRIMONIDINE) TOPICAL GEL, 0.33% [Suspect]
     Indication: ROSACEA
     Dosage: 0.33%
     Route: 061
     Dates: start: 20140217, end: 20140221
  2. METOCLOPRAMIDE [Concomitant]
     Indication: GASTRIC DISORDER
     Route: 048
  3. NEXIUM (ESOMEPRAZOLE) [Concomitant]
     Indication: GASTRIC DISORDER
     Route: 048
  4. PRAVASTATIN [Concomitant]
     Indication: BLOOD CHOLESTEROL
     Route: 048
  5. LISINOPRIL [Concomitant]
     Indication: HYPERTENSION
     Route: 048
  6. ALPRAZOLAM [Concomitant]
     Indication: SLEEP DISORDER
     Route: 048
  7. CETAPHIL GENTLE SKIN CLEANSER [Concomitant]
     Route: 061
  8. CETAPHIL MOISTURIZING LOTION [Concomitant]
     Route: 061
  9. CYMBALTA [Concomitant]
  10. IRON [Concomitant]
  11. MULTIVITAMINS [Concomitant]
  12. CLINIQUE FACIAL MOISTURIZER [Concomitant]

REACTIONS (5)
  - Swelling face [Recovered/Resolved]
  - Feeling hot [Recovered/Resolved]
  - Skin burning sensation [Recovered/Resolved]
  - Erythema [Recovered/Resolved]
  - Flushing [Recovered/Resolved]
